FAERS Safety Report 14967905 (Version 2)
Quarter: 2018Q2

REPORT INFORMATION
  Report Type: Spontaneous
  Country: US (occurrence: US)
  Receive Date: 20180604
  Receipt Date: 20180620
  Transmission Date: 20180711
  Serious: No
  Sender: FDA-Public Use
  Company Number: US-PFIZER INC-2018225554

PATIENT
  Age: 2 Year
  Sex: Female

DRUGS (1)
  1. EUCRISA [Suspect]
     Active Substance: CRISABOROLE
     Dosage: UNK, APPLY A THIN LAYER TO THE AFFECTED AREAS TWICE A DAY
     Route: 061
     Dates: start: 201804, end: 201804

REACTIONS (1)
  - Burning sensation [Unknown]
